FAERS Safety Report 4303322-8 (Version None)
Quarter: 2004Q1

REPORT INFORMATION
  Report Type: 
  Country: None (occurrence: None)
  Receive Date: 20040223
  Receipt Date: 20040216
  Transmission Date: 20041129
  Serious: Yes (Hospitalization)
  Sender: FDA-Public Use
  Company Number: 2004199362ES

PATIENT
  Age: 50 Year
  Sex: Female

DRUGS (3)
  1. TRANKIMAZIN(ALPRAZOLAM)TABLET, 0.5MG [Suspect]
     Indication: FIBROMYALGIA
     Dosage: 2 MG/DAY, ORAL
     Route: 048
  2. SEROXAT ^SMITH KLINE BEECHAM^ (PAROXETINE HYDROCHLORIDE) [Concomitant]
  3. GELOCATIL [Concomitant]

REACTIONS (1)
  - LACTOSE INTOLERANCE [None]
